FAERS Safety Report 22306716 (Version 2)
Quarter: 2023Q2

REPORT INFORMATION
  Report Type: Spontaneous
  Country: CA (occurrence: CA)
  Receive Date: 20230511
  Receipt Date: 20230514
  Transmission Date: 20230722
  Serious: Yes (Hospitalization, Other)
  Sender: FDA-Public Use
  Company Number: CA-BAXTER-2023BAX020750

PATIENT
  Age: 35 Year
  Sex: Female

DRUGS (28)
  1. ONDANSETRON [Suspect]
     Active Substance: ONDANSETRON
     Indication: Morning sickness
     Dosage: 8.0 MILLIGRAM (DOSAGE FORM: NOT SPECIFIED) AT AN UNSPECIFIED FREQUENCY
     Route: 042
  2. ONDANSETRON [Suspect]
     Active Substance: ONDANSETRON
     Indication: Hyperemesis gravidarum
     Dosage: 8.0 MILLIGRAM, 1 EVERY 8 HOURS (DOSAGE FORM: NOT SPECIFIED)
     Route: 042
  3. ONDANSETRON [Suspect]
     Active Substance: ONDANSETRON
     Indication: Nausea
  4. ONDANSETRON [Suspect]
     Active Substance: ONDANSETRON
     Indication: Vomiting
  5. DIMENHYDRINATE [Suspect]
     Active Substance: DIMENHYDRINATE
     Indication: Morning sickness
     Dosage: 50.0 MILLIGRAM, AT AN UNSPECIFIED FREQUENCY (DOSAGE FORM: NOT SPECIFIED)
     Route: 042
  6. DIMENHYDRINATE [Suspect]
     Active Substance: DIMENHYDRINATE
     Indication: Hyperemesis gravidarum
     Dosage: (DOSAGE FORM: NOT SPECIFIED) AT AN UNSPECIFIED DOSE AND FREQUENCY
     Route: 065
  7. DIMENHYDRINATE [Suspect]
     Active Substance: DIMENHYDRINATE
     Indication: Vomiting
     Dosage: (DOSAGE FORM: UNKNOWN) AT AN UNSPECIFIED DOSE AND FREQUENCY
     Route: 048
  8. DIMENHYDRINATE [Suspect]
     Active Substance: DIMENHYDRINATE
     Indication: Nausea
     Dosage: 50.0 MILLIGRAM, 1 EVERY 4 HOURS (DOSAGE FORM: NOT SPECIFIED)
     Route: 042
  9. DOXYLAMINE SUCCINATE\PYRIDOXINE HYDROCHLORIDE [Suspect]
     Active Substance: DOXYLAMINE SUCCINATE\PYRIDOXINE HYDROCHLORIDE
     Indication: Product used for unknown indication
     Dosage: 10.0 MILLIGRAM, AT AN UNSPECIFIED FREQUENCY
     Route: 048
  10. DOXYLAMINE SUCCINATE\PYRIDOXINE HYDROCHLORIDE [Suspect]
     Active Substance: DOXYLAMINE SUCCINATE\PYRIDOXINE HYDROCHLORIDE
     Indication: Morning sickness
     Dosage: 20.0 MILLIGRAM, AT AN UNSPECIFIED FREQUENCY
     Route: 048
  11. FAMOTIDINE [Suspect]
     Active Substance: FAMOTIDINE
     Indication: Morning sickness
     Dosage: 20.0 MILLIGRAM (DOSAGE FORM: NOT SPECIFIED) AT AN UNSPECIFIED FREQUENCY
     Route: 042
  12. FAMOTIDINE [Suspect]
     Active Substance: FAMOTIDINE
     Indication: Hyperemesis gravidarum
     Dosage: 20.0 MILLIGRAM, 1 EVERY 1 DAYS (DOSAGE FORM: NOT SPECIFIED)
     Route: 042
  13. FAMOTIDINE [Suspect]
     Active Substance: FAMOTIDINE
     Indication: Vomiting
     Dosage: (DOSAGE FORM: NOT SPECIFIED) AT AN UNSPECIFIED DOSE AND FREQUENCY
     Route: 042
  14. FAMOTIDINE [Suspect]
     Active Substance: FAMOTIDINE
     Indication: Nausea
     Dosage: (DOSAGE FORM: UNKNOWN)  AT AN UNSPECIFIED DOSE AND FREQUENCY
     Route: 048
  15. PROCHLORPERAZINE [Suspect]
     Active Substance: PROCHLORPERAZINE
     Indication: Product used for unknown indication
     Dosage: 10.0 MILLIGRAM, 4 EVERY 1 DAYS (DOSAGE FORM: NOT SPECIFIED)
     Route: 048
  16. PROCHLORPERAZINE [Suspect]
     Active Substance: PROCHLORPERAZINE
     Indication: Morning sickness
     Dosage: 5.0 MILLIGRAM, 4 EVERY 1 DAYS (DOSAGE FORM: NOT SPECIFIED)
     Route: 048
  17. PROCHLORPERAZINE [Suspect]
     Active Substance: PROCHLORPERAZINE
     Indication: Nausea
     Dosage: 10.0 MILLIGRAM, AT AN UNSPECIFIED FREQUENCY
     Route: 048
  18. PROCHLORPERAZINE [Suspect]
     Active Substance: PROCHLORPERAZINE
     Indication: Hyperemesis gravidarum
     Dosage: 5.0 MILLIGRAM (DOSAGE FORM: NOT SPECIFIED) AT AN UNSPECIFIED FREQUENCY
     Route: 048
  19. PROCHLORPERAZINE [Suspect]
     Active Substance: PROCHLORPERAZINE
     Indication: Vomiting
     Dosage: 5.0 MILLIGRAM, 1 EVERY 6 HOURS (DOSAGE FORM: NOT SPECIFIED) (THERAPY DURATION: 2.0 DAYS)
     Route: 048
  20. PROCHLORPERAZINE [Suspect]
     Active Substance: PROCHLORPERAZINE
     Dosage: AT AN UNSPECIFIED DOSE AND FREQUENCY (THERAPY DURATION: 2.0 DAYS)
     Route: 065
  21. PROCHLORPERAZINE [Suspect]
     Active Substance: PROCHLORPERAZINE
     Dosage: 10.0 MILLIGRAM, 1 EVERY 6 HOURS (THERAPY DURATION: 2.0 DAYS) (DOSAGE FORM: UNKNOWN)
     Route: 048
  22. SUMATRIPTAN SUCCINATE [Suspect]
     Active Substance: SUMATRIPTAN SUCCINATE
     Indication: Product used for unknown indication
     Dosage: UNK
     Route: 065
  23. SUMATRIPTAN SUCCINATE [Suspect]
     Active Substance: SUMATRIPTAN SUCCINATE
     Indication: Migraine
     Dosage: 50.0 MILLIGRAM, AT AN UNSPECIFIED FREQUENCY (DOSAGE FORM: UNKNOWN)
     Route: 048
  24. DOXYLAMINE SUCCINATE\PYRIDOXINE HYDROCHLORIDE [Suspect]
     Active Substance: DOXYLAMINE SUCCINATE\PYRIDOXINE HYDROCHLORIDE
     Indication: Hyperemesis gravidarum
     Dosage: 40.0 MILLIGRAM, 1 EVERY 1 DAYS
     Route: 048
  25. DOXYLAMINE SUCCINATE\PYRIDOXINE HYDROCHLORIDE [Suspect]
     Active Substance: DOXYLAMINE SUCCINATE\PYRIDOXINE HYDROCHLORIDE
     Indication: Vomiting
     Dosage: 20.0 MILLIGRAM, 1 EVERY 1 DAYS (DOSAGE FORM: UNKNOWN)
     Route: 048
  26. DOXYLAMINE SUCCINATE\PYRIDOXINE HYDROCHLORIDE [Suspect]
     Active Substance: DOXYLAMINE SUCCINATE\PYRIDOXINE HYDROCHLORIDE
     Indication: Nausea
     Dosage: 10.0 MILLIGRAM, 1 EVERY 12 HOURS
     Route: 048
  27. SUMATRIPTAN [Suspect]
     Active Substance: SUMATRIPTAN
     Indication: Migraine
     Dosage: (DOSAGE FORM: NOT SPECIFIED) AT AN UNSPECIFIED DOSE AND FREQUENCY
     Route: 065
  28. SUMATRIPTAN [Suspect]
     Active Substance: SUMATRIPTAN
     Dosage: 1.0 DOSAGE FORMS, AT AN UNSPECIFIED FREQUENCY
     Route: 048

REACTIONS (18)
  - Abortion spontaneous [Recovered/Resolved]
  - Clonus [Recovered/Resolved]
  - Emotional distress [Recovered/Resolved]
  - Extensor plantar response [Recovered/Resolved]
  - Hyperhidrosis [Recovered/Resolved]
  - Hypertonia [Recovered/Resolved]
  - Muscle contractions involuntary [Recovered/Resolved]
  - Muscle spasticity [Recovered/Resolved]
  - Drug ineffective [Recovered/Resolved]
  - Myalgia [Recovered/Resolved]
  - Sinus tachycardia [Recovered/Resolved]
  - Therapy non-responder [Recovered/Resolved]
  - Exposure during pregnancy [Recovered/Resolved]
  - Serotonin syndrome [Recovered/Resolved]
  - Pyrexia [Recovered/Resolved]
  - Hyperreflexia [Recovered/Resolved]
  - Tachycardia [Recovered/Resolved]
  - Tremor [Recovered/Resolved]
